FAERS Safety Report 15993691 (Version 1)
Quarter: 2019Q1

REPORT INFORMATION
  Report Type: Report from Study
  Country: GR (occurrence: GR)
  Receive Date: 20190222
  Receipt Date: 20190222
  Transmission Date: 20190418
  Serious: Yes (Hospitalization, Other)
  Sender: FDA-Public Use
  Company Number: GR-SA-2019SA043821

PATIENT
  Age: 94 Year
  Sex: Female

DRUGS (11)
  1. INSULIN GLARGINE [Suspect]
     Active Substance: INSULIN GLARGINE
     Indication: DIABETES MELLITUS
     Dosage: UNK UNK, QD
     Route: 058
     Dates: start: 20190212
  2. FUROSEMIDE. [Suspect]
     Active Substance: FUROSEMIDE
     Dosage: 0.5 DF, QD
     Route: 048
  3. CORTISONE [Concomitant]
     Active Substance: CORTISONE\HYDROCORTISONE
  4. THYROSTAT [CARBIMAZOLE] [Concomitant]
  5. FILICINE [Concomitant]
  6. FUROSEMIDE. [Suspect]
     Active Substance: FUROSEMIDE
     Dosage: 2 DF , QD
     Route: 048
  7. PLAVIDOSA [Concomitant]
     Active Substance: CLOPIDOGREL BISULFATE
  8. MEDROL [Concomitant]
     Active Substance: METHYLPREDNISOLONE
  9. BELIFAX [Concomitant]
  10. SOLURIC [Concomitant]
     Active Substance: ALLOPURINOL
  11. SALUREX [Concomitant]

REACTIONS (3)
  - Infection [Unknown]
  - End stage renal disease [Unknown]
  - Blood glucose increased [Unknown]

NARRATIVE: CASE EVENT DATE: 20190213
